FAERS Safety Report 16058334 (Version 1)
Quarter: 2019Q1

REPORT INFORMATION
  Report Type: Spontaneous
  Country: FR (occurrence: FR)
  Receive Date: 20190311
  Receipt Date: 20190311
  Transmission Date: 20190418
  Serious: Yes (Hospitalization)
  Sender: FDA-Public Use
  Company Number: FR-ELI_LILLY_AND_COMPANY-FR201903001015

PATIENT
  Age: 55 Year
  Sex: Male
  Weight: 53 kg

DRUGS (2)
  1. ERBITUX [Suspect]
     Active Substance: CETUXIMAB
     Indication: HEAD AND NECK CANCER
     Dosage: 400 MG, UNKNOWN
     Route: 042
     Dates: start: 20190219
  2. CARBOPLATINE [Concomitant]
     Active Substance: CARBOPLATIN
     Indication: HEAD AND NECK CANCER
     Dosage: UNK

REACTIONS (1)
  - Bronchospasm [Recovered/Resolved]

NARRATIVE: CASE EVENT DATE: 20190219
